FAERS Safety Report 23500593 (Version 7)
Quarter: 2024Q2

REPORT INFORMATION
  Report Type: Spontaneous
  Country: ES (occurrence: ES)
  Receive Date: 20240208
  Receipt Date: 20240410
  Transmission Date: 20240716
  Serious: Yes (Other)
  Sender: FDA-Public Use
  Company Number: ES-CHIESI-2024CHF00354

PATIENT
  Age: 100 Year
  Sex: Male

DRUGS (34)
  1. APIXABAN [Suspect]
     Active Substance: APIXABAN
     Indication: Cerebrovascular accident
     Dosage: 2.5 MG, 2X/DAY
     Route: 065
  2. APIXABAN [Suspect]
     Active Substance: APIXABAN
     Dosage: 1 DOSAGE FORM, Q12H
     Route: 065
  3. PANTOPRAZOLE [Suspect]
     Active Substance: PANTOPRAZOLE
     Indication: Gastrooesophageal reflux disease
     Dosage: 20 MILLIGRAM, QD
     Route: 065
  4. PANTOPRAZOLE [Suspect]
     Active Substance: PANTOPRAZOLE
     Indication: Prophylaxis
     Dosage: 1 DOSAGE FORM, QD
     Route: 065
  5. IPRATROPIUM BROMIDE [Suspect]
     Active Substance: IPRATROPIUM BROMIDE\IPRATROPIUM BROMIDE ANHYDROUS
     Indication: Chronic obstructive pulmonary disease
     Dosage: 2 DOSAGE FORM, Q12H
     Route: 050
  6. IPRATROPIUM BROMIDE [Suspect]
     Active Substance: IPRATROPIUM BROMIDE\IPRATROPIUM BROMIDE ANHYDROUS
     Dosage: 4 DOSAGE FORM, QD
     Route: 050
  7. IPRATROPIUM BROMIDE [Suspect]
     Active Substance: IPRATROPIUM BROMIDE\IPRATROPIUM BROMIDE ANHYDROUS
     Dosage: 20 MICROGRAM, QD
     Route: 065
  8. ALBUTEROL [Suspect]
     Active Substance: ALBUTEROL
     Indication: Chronic obstructive pulmonary disease
     Dosage: 2 DOSAGE FORM, Q12H
     Route: 055
  9. AMIODARONE HYDROCHLORIDE [Suspect]
     Active Substance: AMIODARONE HYDROCHLORIDE
     Indication: Arrhythmia
     Dosage: 200 MILLIGRAM(1/2/0/0)
  10. FORMOTEROL [Suspect]
     Active Substance: FORMOTEROL
     Indication: Chronic obstructive pulmonary disease
     Dosage: 2 DF, 2X/DAY
  11. EPLERENONE [Suspect]
     Active Substance: EPLERENONE
     Indication: Cardiac failure
     Dosage: 25 MG, 1X/DAY
     Route: 065
  12. EPLERENONE [Suspect]
     Active Substance: EPLERENONE
     Dosage: 1 DOSAGE FORM, QD
     Route: 065
  13. TRAZODONE HYDROCHLORIDE [Suspect]
     Active Substance: TRAZODONE HYDROCHLORIDE
     Indication: Insomnia
     Dosage: 0.5 DF, 1X/DAY
  14. GLYCOPYRRONIUM [Suspect]
     Active Substance: GLYCOPYRRONIUM
     Indication: Chronic obstructive pulmonary disease
     Dosage: 7.2 MICROGRAM(2/0/2)
  15. BISOPROLOL FUMARATE [Suspect]
     Active Substance: BISOPROLOL FUMARATE
     Indication: Cardiac failure
     Dosage: 2.5 MG, 1X/DAY
  16. BISOPROLOL FUMARATE [Suspect]
     Active Substance: BISOPROLOL FUMARATE
     Dosage: 1 DOSAGE FORM, QD
     Route: 065
  17. POTASSIUM CHLORIDE [Suspect]
     Active Substance: POTASSIUM CHLORIDE
     Indication: Cardiac failure
     Dosage: 600 MILLIGRAM, (1X)
  18. POTASSIUM CHLORIDE [Suspect]
     Active Substance: POTASSIUM CHLORIDE
     Dosage: 1 DOSAGE FORM, QD
     Route: 065
  19. ZOLPIDEM [Suspect]
     Active Substance: ZOLPIDEM TARTRATE
     Indication: Insomnia
     Dosage: 10 MILLIGRAM (0/0/1/2)
  20. ZOLPIDEM [Suspect]
     Active Substance: ZOLPIDEM TARTRATE
     Dosage: UNK, QD
     Route: 065
  21. BUDESONIDE [Suspect]
     Active Substance: BUDESONIDE
     Indication: Chronic obstructive pulmonary disease
     Dosage: 2 DF, 2X/DAY
     Route: 055
  22. FUROSEMIDE [Suspect]
     Active Substance: FUROSEMIDE
     Indication: Cardiac failure
     Dosage: 40 MILLIGRAM, QD
     Route: 065
  23. FUROSEMIDE [Suspect]
     Active Substance: FUROSEMIDE
     Dosage: 1 DOSAGE FORM, QD
     Route: 065
  24. ACETAMINOPHEN [Concomitant]
     Active Substance: ACETAMINOPHEN
     Indication: Pain
     Dosage: 1 G, 1X/DAY
     Route: 065
  25. ACETAMINOPHEN [Concomitant]
     Active Substance: ACETAMINOPHEN
     Dosage: 1 DOSAGE FORM, QD
     Route: 065
  26. ACETAMINOPHEN [Concomitant]
     Active Substance: ACETAMINOPHEN
     Dosage: 650 MG, 1X/DAY
     Route: 065
  27. AMLODIPINE [Concomitant]
     Active Substance: AMLODIPINE BESYLATE
     Indication: Hypertension
     Dosage: 5 MG, 1X/DAY
     Route: 065
  28. AMLODIPINE [Concomitant]
     Active Substance: AMLODIPINE BESYLATE
     Dosage: 1 DOSAGE FORM, QD
     Route: 065
  29. CHOLECALCIFEROL [Concomitant]
     Active Substance: CHOLECALCIFEROL
     Indication: Vitamin D deficiency
     Dosage: UNK
     Route: 065
     Dates: start: 20211210
  30. LATANOPROST [Concomitant]
     Active Substance: LATANOPROST
     Indication: Glaucoma
     Dosage: 1 DF, 1X/DAY
  31. NITROGLYCERIN [Concomitant]
     Active Substance: NITROGLYCERIN
     Indication: Angina pectoris
     Dosage: 10 MILLIGRAM, QD
     Route: 065
  32. NITROGLYCERIN [Concomitant]
     Active Substance: NITROGLYCERIN
     Dosage: 1 DOSAGE FORM, QD
     Route: 065
  33. ATORVASTATIN [Concomitant]
     Active Substance: ATORVASTATIN
     Indication: Cerebrovascular accident
     Dosage: 40 MILLIGRAM, QD
     Route: 065
  34. ATORVASTATIN [Concomitant]
     Active Substance: ATORVASTATIN
     Dosage: 1 DOSAGE FORM, QD
     Route: 065

REACTIONS (1)
  - Bradycardia [Recovered/Resolved]
